FAERS Safety Report 24011435 (Version 1)
Quarter: 2024Q2

REPORT INFORMATION
  Report Type: Spontaneous
  Country: US (occurrence: US)
  Receive Date: 20240625
  Receipt Date: 20240625
  Transmission Date: 20240716
  Serious: No
  Sender: FDA-Public Use
  Company Number: US-ELI_LILLY_AND_COMPANY-US202406015616

PATIENT
  Age: 47 Year
  Sex: Female

DRUGS (4)
  1. TALTZ [Suspect]
     Active Substance: IXEKIZUMAB
     Indication: Psoriasis
     Dosage: UNK UNK, EVERY TWO WEEKS
     Route: 065
     Dates: start: 202402
  2. TALTZ [Suspect]
     Active Substance: IXEKIZUMAB
     Indication: Psoriasis
     Dosage: UNK UNK, EVERY TWO WEEKS
     Route: 065
     Dates: start: 202402
  3. TALTZ [Suspect]
     Active Substance: IXEKIZUMAB
     Dosage: UNK UNK, ONCE A MONTH
     Route: 065
  4. TALTZ [Suspect]
     Active Substance: IXEKIZUMAB
     Dosage: UNK UNK, ONCE A MONTH
     Route: 065

REACTIONS (5)
  - Incorrect dose administered [Unknown]
  - Injection site laceration [Recovering/Resolving]
  - Injection site swelling [Unknown]
  - Injection site pain [Recovered/Resolved]
  - Therapy partial responder [Not Recovered/Not Resolved]

NARRATIVE: CASE EVENT DATE: 20240618
